FAERS Safety Report 9098688 (Version 1)
Quarter: 2013Q1

REPORT INFORMATION
  Report Type: Spontaneous
  Country: US (occurrence: US)
  Receive Date: 20130213
  Receipt Date: 20130213
  Transmission Date: 20140127
  Serious: No
  Sender: FDA-Public Use
  Company Number: US-ALLERGAN-1217307US

PATIENT
  Age: 37 Year
  Sex: Female

DRUGS (1)
  1. LASTACAFT [Suspect]
     Indication: CONJUNCTIVITIS
     Dosage: 2 GTT, QD
     Route: 047
     Dates: start: 20121210, end: 20121211

REACTIONS (6)
  - Activities of daily living impaired [Unknown]
  - Sudden onset of sleep [Unknown]
  - Fatigue [Unknown]
  - Feeling abnormal [Unknown]
  - Asthenia [Unknown]
  - Eye irritation [Unknown]
